FAERS Safety Report 7931792-2 (Version None)
Quarter: 2011Q4

REPORT INFORMATION
  Report Type: 
  Country: None (occurrence: None)
  Receive Date: 20111121
  Receipt Date: 20111116
  Transmission Date: 20120403
  Serious: Yes (Hospitalization)
  Sender: FDA-Public Use
  Company Number: BR-ABBOTT-11P-020-0875027-00

PATIENT
  Sex: Female
  Weight: 66 kg

DRUGS (5)
  1. LEFLUNOMIDE [Concomitant]
     Indication: MUSCULOSKELETAL PAIN
     Route: 048
  2. PREDNISOLONE [Concomitant]
     Indication: MUSCULOSKELETAL PAIN
     Route: 048
  3. HUMIRA [Suspect]
     Indication: RHEUMATOID ARTHRITIS
     Dates: start: 20090901
  4. CYCLOBENZAPRINE HYDROCHLORIDE [Concomitant]
     Indication: DEPRESSION
     Route: 048
  5. ATENOLOL [Concomitant]
     Indication: HYPERTENSION
     Route: 048

REACTIONS (3)
  - ARTHRALGIA [None]
  - THERMAL BURN [None]
  - PAIN [None]
